FAERS Safety Report 10934901 (Version 1)
Quarter: 2015Q1

REPORT INFORMATION
  Report Type: Spontaneous
  Country: US (occurrence: US)
  Receive Date: 20150320
  Receipt Date: 20150320
  Transmission Date: 20150721
  Serious: Yes (Other)
  Sender: FDA-Public Use
  Company Number: US-SA-2015SA033145

PATIENT
  Age: 76 Year
  Sex: Female

DRUGS (2)
  1. LANTUS [Suspect]
     Active Substance: INSULIN GLARGINE
     Indication: TYPE 1 DIABETES MELLITUS
     Dosage: START: EARLY MID 1990^S DOSE:32 UNIT(S)
     Route: 065
  2. NOVOLOG [Concomitant]
     Active Substance: INSULIN ASPART
     Indication: TYPE 1 DIABETES MELLITUS

REACTIONS (8)
  - Hypoglycaemia [Unknown]
  - Diabetic retinopathy [Unknown]
  - Knee arthroplasty [Unknown]
  - Arthritis [Unknown]
  - Macular degeneration [Not Recovered/Not Resolved]
  - Glaucoma [Unknown]
  - Shoulder operation [Unknown]
  - Spinal column stenosis [Unknown]
